FAERS Safety Report 5679097-7 (Version None)
Quarter: 2008Q1

REPORT INFORMATION
  Report Type: 
  Country: None (occurrence: None)
  Receive Date: 20080325
  Receipt Date: 20080314
  Transmission Date: 20080703
  Serious: Yes (Death)
  Sender: FDA-Public Use
  Company Number: US-JNJFOC-20080303654

PATIENT
  Sex: Male

DRUGS (13)
  1. CISAPRIDE [Suspect]
     Route: 048
  2. CISAPRIDE [Suspect]
     Indication: DIABETIC GASTROPARESIS
     Route: 048
  3. ASPIRIN [Concomitant]
     Route: 065
  4. HYDROCODONE BITARTRATE [Concomitant]
     Route: 065
  5. PROGRAF [Concomitant]
     Route: 065
  6. PREDNISONE TAB [Concomitant]
     Route: 065
  7. TOPROL [Concomitant]
     Route: 065
  8. NORVASC [Concomitant]
     Route: 065
  9. LISINOPRIL [Concomitant]
     Route: 065
  10. LASIX [Concomitant]
     Route: 065
  11. MONOXIDIL [Concomitant]
     Route: 065
  12. LANTUS [Concomitant]
     Route: 065
  13. HUMALOG [Concomitant]
     Route: 065

REACTIONS (1)
  - DEATH [None]
